FAERS Safety Report 24610615 (Version 1)
Quarter: 2024Q4

REPORT INFORMATION
  Report Type: Spontaneous
  Country: US (occurrence: US)
  Receive Date: 20241112
  Receipt Date: 20241112
  Transmission Date: 20250114
  Serious: Yes (Hospitalization, Other)
  Sender: MYLAN
  Company Number: US-MYLANLABS-2024M1101103

PATIENT
  Age: 33 Year
  Sex: Male

DRUGS (8)
  1. FLUCONAZOLE [Interacting]
     Active Substance: FLUCONAZOLE
     Indication: Meningitis cryptococcal
     Dosage: INITIAL DOSAGE NOT STATED
     Route: 048
  2. FLUCONAZOLE [Interacting]
     Active Substance: FLUCONAZOLE
     Dosage: 1200 MILLIGRAM, QD
     Route: 048
  3. FLUCONAZOLE [Interacting]
     Active Substance: FLUCONAZOLE
     Dosage: 400 MILLIGRAM, QD
     Route: 048
  4. SULFAMETHOXAZOLE\TRIMETHOPRIM [Suspect]
     Active Substance: SULFAMETHOXAZOLE\TRIMETHOPRIM
     Indication: Pneumocystis jirovecii infection
     Dosage: UNK
     Route: 065
  5. SULFAMETHOXAZOLE\TRIMETHOPRIM [Suspect]
     Active Substance: SULFAMETHOXAZOLE\TRIMETHOPRIM
     Indication: Toxoplasmosis
  6. DOLUTEGRAVIR SODIUM\RILPIVIRINE HYDROCHLORIDE [Interacting]
     Active Substance: DOLUTEGRAVIR SODIUM\RILPIVIRINE HYDROCHLORIDE
     Indication: HIV infection
     Dosage: UNK
     Route: 065
  7. AMPHOTERICIN B [Concomitant]
     Active Substance: AMPHOTERICIN B
     Indication: Meningitis cryptococcal
     Dosage: UNK
     Route: 065
  8. FLUCYTOSINE [Concomitant]
     Active Substance: FLUCYTOSINE
     Indication: Meningitis cryptococcal
     Dosage: UNK
     Route: 065

REACTIONS (2)
  - Pancreatitis acute [Recovering/Resolving]
  - Drug interaction [Unknown]
